FAERS Safety Report 7705897-5 (Version None)
Quarter: 2011Q3

REPORT INFORMATION
  Report Type: 
  Country: None (occurrence: None)
  Receive Date: 20110824
  Receipt Date: 20110810
  Transmission Date: 20111222
  Serious: Yes (Other)
  Sender: FDA-Public Use
  Company Number: CA-ELI_LILLY_AND_COMPANY-CA201108002923

PATIENT
  Age: 76 Year
  Sex: Female

DRUGS (13)
  1. PREDNISONE [Concomitant]
  2. LYRICA [Concomitant]
  3. VOLTAREN                                /SCH/ [Concomitant]
  4. XALATAN [Concomitant]
  5. NEXIUM [Concomitant]
  6. ASPIRIN [Concomitant]
  7. FORTEO [Suspect]
     Indication: OSTEOPOROSIS
     Dosage: 20 UG, QD
     Route: 058
     Dates: start: 20110728, end: 20110808
  8. VITAMIN D [Concomitant]
  9. CORTISONE ACETATE [Concomitant]
     Dosage: 5 MG, QD
  10. FENTANYL [Concomitant]
  11. CALCIUM CARBONATE [Concomitant]
  12. ALPHAGAN [Concomitant]
  13. CORTISONE ACETATE [Concomitant]
     Dosage: 20 MG, QD
     Route: 065

REACTIONS (1)
  - PAIN IN EXTREMITY [None]
